FAERS Safety Report 25035669 (Version 11)
Quarter: 2025Q3

REPORT INFORMATION
  Report Type: Spontaneous
  Country: US (occurrence: US)
  Receive Date: 20250304
  Receipt Date: 20250818
  Transmission Date: 20251020
  Serious: No
  Sender: KARYOPHARM THERAPEUTICS
  Company Number: US-KARYOPHARM-2025KPT000209

PATIENT

DRUGS (13)
  1. XPOVIO [Suspect]
     Active Substance: SELINEXOR
     Indication: Plasma cell myeloma
     Route: 048
     Dates: start: 20250224, end: 2025
  2. XPOVIO [Suspect]
     Active Substance: SELINEXOR
  3. BENICAR [Concomitant]
     Active Substance: OLMESARTAN MEDOXOMIL
  4. CARVEDILOL [Concomitant]
     Active Substance: CARVEDILOL
  5. CHOLESTYRAMINE [Concomitant]
     Active Substance: CHOLESTYRAMINE
  6. DARZALEX FASPRO [Concomitant]
     Active Substance: DARATUMUMAB\HYALURONIDASE-FIHJ
     Route: 058
  7. DEXAMETHASONE [Concomitant]
     Active Substance: DEXAMETHASONE
  8. EFFEXOR XR [Concomitant]
     Active Substance: VENLAFAXINE HYDROCHLORIDE
  9. LEVOTHYROXINE [Concomitant]
     Active Substance: LEVOTHYROXINE
  10. METOPROLOL TARTRATE [Concomitant]
     Active Substance: METOPROLOL TARTRATE
  11. VERQUVO [Concomitant]
     Active Substance: VERICIGUAT
  12. XARELTO [Concomitant]
     Active Substance: RIVAROXABAN
  13. OLANZAPINE [Concomitant]
     Active Substance: OLANZAPINE

REACTIONS (13)
  - Drug intolerance [Recovering/Resolving]
  - Fall [Unknown]
  - Insomnia [Unknown]
  - Fluid retention [Unknown]
  - Eye contusion [Unknown]
  - Malaise [Unknown]
  - Dizziness [Not Recovered/Not Resolved]
  - Nausea [Not Recovered/Not Resolved]
  - Asthenia [Not Recovered/Not Resolved]
  - Decreased appetite [Unknown]
  - Vomiting [Unknown]
  - Constipation [Unknown]
  - Intentional dose omission [Unknown]

NARRATIVE: CASE EVENT DATE: 20250101
